FAERS Safety Report 7680567-0 (Version None)
Quarter: 2011Q3

REPORT INFORMATION
  Report Type: 
  Country: None (occurrence: None)
  Receive Date: 20110812
  Receipt Date: 20110801
  Transmission Date: 20111222
  Serious: Yes (Other)
  Sender: FDA-Public Use
  Company Number: AU-JNJFOC-20110802626

PATIENT
  Sex: Female

DRUGS (4)
  1. STELARA [Suspect]
     Route: 058
     Dates: start: 20110707
  2. STELARA [Suspect]
     Route: 058
     Dates: start: 20110120
  3. STELARA [Suspect]
     Indication: PSORIASIS
     Route: 058
     Dates: start: 20110413
  4. STELARA [Suspect]
     Route: 058
     Dates: start: 20101223

REACTIONS (1)
  - KNEE OPERATION [None]
